FAERS Safety Report 24229911 (Version 1)
Quarter: 2024Q3

REPORT INFORMATION
  Report Type: Spontaneous
  Country: TR (occurrence: TR)
  Receive Date: 20240820
  Receipt Date: 20240820
  Transmission Date: 20241017
  Serious: No
  Sender: TOLMAR
  Company Number: TR-TOLMAR, INC.-24TR051401

PATIENT
  Age: 78 Year
  Sex: Male

DRUGS (2)
  1. ELIGARD [Suspect]
     Active Substance: LEUPROLIDE ACETATE
     Indication: Hormone-dependent prostate cancer
     Dosage: 22.5 MILLIGRAM
     Dates: start: 20240729
  2. ELIGARD [Suspect]
     Active Substance: LEUPROLIDE ACETATE
     Dosage: 22.5 MILLIGRAM
     Dates: start: 20211117

REACTIONS (4)
  - Intercepted product preparation error [Unknown]
  - Device leakage [Unknown]
  - Product packaging quantity issue [Unknown]
  - Device occlusion [Unknown]

NARRATIVE: CASE EVENT DATE: 20240729
